FAERS Safety Report 14419679 (Version 3)
Quarter: 2018Q1

REPORT INFORMATION
  Report Type: Spontaneous
  Country: LT (occurrence: LT)
  Receive Date: 20180122
  Receipt Date: 20180123
  Transmission Date: 20180509
  Serious: Yes (Hospitalization)
  Sender: FDA-Public Use
  Company Number: PHHY2017LT194029

PATIENT
  Age: 35 Year
  Sex: Female

DRUGS (11)
  1. MEROPENEM. [Suspect]
     Active Substance: MEROPENEM
     Indication: PERITONITIS
     Dosage: 1 G, TID
     Route: 065
  2. DEXAMETHASONE. [Suspect]
     Active Substance: DEXAMETHASONE
     Indication: MATERNAL THERAPY TO ENHANCE FOETAL LUNG MATURITY
     Route: 065
  3. HEPARIN [Suspect]
     Active Substance: HEPARIN SODIUM
     Indication: THROMBOSIS PROPHYLAXIS
     Dosage: 0.4 ML, QD
     Route: 058
  4. CEFAZOLIN [Suspect]
     Active Substance: CEFAZOLIN
     Indication: AMNIOTIC CAVITY INFECTION
     Route: 065
  5. DICLOFENAC [Suspect]
     Active Substance: DICLOFENAC
     Indication: ABDOMINAL PAIN
  6. FENTANYL. [Suspect]
     Active Substance: FENTANYL
     Indication: LABOUR PAIN
     Route: 065
  7. GENTAMYCIN [Suspect]
     Active Substance: GENTAMICIN
     Indication: AMNIOTIC CAVITY INFECTION
     Route: 065
  8. DICLOFENAC [Suspect]
     Active Substance: DICLOFENAC
     Indication: URINARY TRACT INFECTION
     Dosage: 100 MG, QD
     Route: 054
     Dates: start: 20070814
  9. METRONIDAZOLE. [Suspect]
     Active Substance: METRONIDAZOLE
     Indication: AMNIOTIC CAVITY INFECTION
     Route: 065
  10. NITROFURANTOIN. [Suspect]
     Active Substance: NITROFURANTOIN
     Indication: URINARY TRACT INFECTION
     Dosage: 100 MG, BID
     Route: 065
  11. MAGNESIUM [Suspect]
     Active Substance: MAGNESIUM
     Indication: PRODUCT USED FOR UNKNOWN INDICATION
     Route: 065

REACTIONS (2)
  - Premature delivery [Unknown]
  - Maternal exposure during pregnancy [Unknown]
